FAERS Safety Report 5722692-7 (Version None)
Quarter: 2008Q2

REPORT INFORMATION
  Report Type: 
  Country: None (occurrence: None)
  Receive Date: 20080429
  Receipt Date: 20071218
  Transmission Date: 20081010
  Serious: No
  Sender: FDA-Public Use
  Company Number: US-ASTRAZENECA-2007UW26746

PATIENT
  Age: 81 Year
  Sex: Male
  Weight: 83.9 kg

DRUGS (6)
  1. NEXIUM [Suspect]
     Indication: GASTROOESOPHAGEAL REFLUX DISEASE
     Route: 048
     Dates: start: 20050101
  2. NEXIUM [Suspect]
     Route: 048
  3. ASPIRIN [Concomitant]
  4. VITAMINS [Concomitant]
  5. OSTEO BI-FLEX [Concomitant]
  6. CALCIUM [Concomitant]

REACTIONS (3)
  - DIARRHOEA [None]
  - GASTROOESOPHAGEAL REFLUX DISEASE [None]
  - PHARMACEUTICAL PRODUCT COMPLAINT [None]
